FAERS Safety Report 4807529-2 (Version None)
Quarter: 2005Q4

REPORT INFORMATION
  Report Type: 
  Country: None (occurrence: None)
  Receive Date: 20051024
  Receipt Date: 20031104
  Transmission Date: 20060501
  Serious: Yes (Hospitalization)
  Sender: FDA-Public Use
  Company Number: AT-ROCHE-350725

PATIENT
  Age: 18 Year
  Sex: Male

DRUGS (10)
  1. DACLIZUMAB [Suspect]
     Route: 042
     Dates: start: 20030219, end: 20030219
  2. DACLIZUMAB [Suspect]
     Route: 042
     Dates: start: 20030304, end: 20030415
  3. MYCOPHENOLATE MOFETIL [Suspect]
     Route: 048
     Dates: start: 20030219
  4. SIROLIMUS [Suspect]
     Route: 048
     Dates: start: 20030219
  5. PREDNISOLONE [Suspect]
     Route: 048
     Dates: start: 20030215
  6. BAYPRESS [Concomitant]
     Route: 048
     Dates: start: 20030415
  7. SELOKEN [Concomitant]
     Route: 048
     Dates: start: 20030415
  8. THROMBO ASS [Concomitant]
     Route: 048
     Dates: start: 20030315
  9. COZAAR [Concomitant]
     Route: 048
     Dates: start: 20030415
  10. THROMBO ASS [Concomitant]
     Route: 048
     Dates: start: 20030415

REACTIONS (1)
  - HERPES SIMPLEX [None]
